FAERS Safety Report 7335808-6 (Version None)
Quarter: 2011Q1

REPORT INFORMATION
  Report Type: 
  Country: None (occurrence: None)
  Receive Date: 20110307
  Receipt Date: 20110225
  Transmission Date: 20110831
  Serious: Yes (Other)
  Sender: FDA-Public Use
  Company Number: FR-PFIZER INC-2010078678

PATIENT
  Sex: Female
  Weight: 2.78 kg

DRUGS (2)
  1. EFFEXOR XR [Suspect]
     Dosage: 37.5 MG, 1X/DAY
     Route: 064
  2. XANAX [Suspect]
     Dosage: 0.25 MG, 2X/DAY
     Route: 064

REACTIONS (7)
  - DIARRHOEA NEONATAL [None]
  - PREMATURE BABY [None]
  - NAUSEA [None]
  - BREECH PRESENTATION [None]
  - VOMITING NEONATAL [None]
  - DRUG EXPOSURE DURING PREGNANCY [None]
  - DRUG WITHDRAWAL SYNDROME NEONATAL [None]
